FAERS Safety Report 6417257-8 (Version None)
Quarter: 2009Q4

REPORT INFORMATION
  Report Type: 
  Country: None (occurrence: None)
  Receive Date: 20091027
  Receipt Date: 20091027
  Transmission Date: 20100525
  Serious: Yes (Life-Threatening, Hospitalization)
  Sender: FDA-Public Use
  Company Number: None

PATIENT
  Age: 38 Year
  Sex: Female
  Weight: 92 kg

DRUGS (19)
  1. CEFEPIME [Suspect]
     Indication: PSEUDOMONAS INFECTION
     Dosage: 2 GM Q12 IV
     Route: 042
     Dates: start: 20090730, end: 20090803
  2. ALBUTEROL [Concomitant]
  3. BACTRIM [Concomitant]
  4. BONIVA [Concomitant]
  5. CALCIUM [Concomitant]
  6. CLIMARA [Concomitant]
  7. LEVOTHYROXINE SODIUM [Concomitant]
  8. LIPITOR [Concomitant]
  9. LISINOPRIL [Concomitant]
  10. MYCOPHENOLATE MOFETIL [Concomitant]
  11. PAXIL [Concomitant]
  12. PREDNISONE [Concomitant]
  13. PREVACID [Concomitant]
  14. PROGRAF [Concomitant]
  15. PROMETRIUM [Concomitant]
  16. TOPROL-XL [Concomitant]
  17. VALCYTE [Concomitant]
  18. XALATAN [Concomitant]
  19. XANAX [Concomitant]

REACTIONS (7)
  - BLOOD PRESSURE DECREASED [None]
  - BODY TEMPERATURE INCREASED [None]
  - DIZZINESS [None]
  - DOCUMENTED HYPERSENSITIVITY TO ADMINISTERED DRUG [None]
  - DYSPNOEA [None]
  - EYELID OEDEMA [None]
  - RASH [None]
